FAERS Safety Report 4703602-8 (Version None)
Quarter: 2005Q2

REPORT INFORMATION
  Report Type: 
  Country: None (occurrence: None)
  Receive Date: 20050630
  Receipt Date: 20050620
  Transmission Date: 20051028
  Serious: Yes (Other)
  Sender: FDA-Public Use
  Company Number: IN-ABBOTT-05P-078-0303914-00

PATIENT
  Age: 5 Year
  Sex: Female
  Weight: 20 kg

DRUGS (5)
  1. VALPROATE SODIUM [Suspect]
     Indication: CONVULSION
  2. VALPROATE SODIUM SYRUP [Interacting]
  3. TOPIRAMATE [Interacting]
     Indication: CONVULSION
  4. LAMOTRIGINE [Concomitant]
     Indication: CONVULSION
  5. CARBAMAZEPINE [Concomitant]
     Indication: CONVULSION

REACTIONS (4)
  - DRUG INTERACTION [None]
  - ELECTROENCEPHALOGRAM ABNORMAL [None]
  - ENCEPHALOPATHY [None]
  - HYPERAMMONAEMIA [None]
